FAERS Safety Report 6341343-4 (Version None)
Quarter: 2009Q3

REPORT INFORMATION
  Report Type: 
  Country: None (occurrence: None)
  Receive Date: 20090902
  Receipt Date: 20090902
  Transmission Date: 20100115
  Serious: Yes (Life-Threatening)
  Sender: FDA-Public Use
  Company Number: None

PATIENT
  Sex: Female
  Weight: 56.246 kg

DRUGS (1)
  1. REMICADE [Suspect]
     Indication: RHEUMATOID ARTHRITIS
     Dosage: 6 VIALS 8 WEEKS IV DRIP
     Route: 041
     Dates: start: 20010801, end: 20090901

REACTIONS (2)
  - CARCINOMA IN SITU [None]
  - NONSPECIFIC REACTION [None]
